FAERS Safety Report 4885219-8 (Version None)
Quarter: 2006Q1

REPORT INFORMATION
  Report Type: 
  Country: None (occurrence: None)
  Receive Date: 20060119
  Receipt Date: 20040929
  Transmission Date: 20060701
  Serious: Yes (Disabling)
  Sender: FDA-Public Use
  Company Number: 2004AP05087

PATIENT
  Age: 83 Year
  Sex: Male

DRUGS (13)
  1. ANAPEINE [Suspect]
     Indication: EPIDURAL ANAESTHESIA
     Route: 008
  2. ANAPEINE [Suspect]
     Indication: POSTOPERATIVE ANALGESIA
     Route: 008
  3. ANAPEINE [Suspect]
     Route: 008
  4. ANAPEINE [Suspect]
     Route: 008
  5. PROPOFOL [Concomitant]
     Indication: INDUCTION OF ANAESTHESIA
     Route: 042
  6. NITROUS OXIDE W/ OXYGEN [Concomitant]
     Indication: MAINTENANCE OF ANAESTHESIA
     Route: 055
  7. SEVOFLURANE [Concomitant]
     Indication: MAINTENANCE OF ANAESTHESIA
     Route: 055
  8. FENTANEST [Concomitant]
     Route: 042
  9. VECURONIUM BROMIDE [Concomitant]
     Route: 042
  10. MORPHINE [Concomitant]
     Indication: EPIDURAL ANAESTHESIA
     Route: 008
  11. OXYGEN [Concomitant]
     Indication: MAINTENANCE OF ANAESTHESIA
     Route: 055
  12. DOPAMINE [Concomitant]
     Indication: BLOOD PRESSURE FLUCTUATION
     Route: 041
  13. INFUSION SOLUTION [Concomitant]
     Indication: BLOOD PRESSURE FLUCTUATION
     Route: 041

REACTIONS (2)
  - BLOOD PRESSURE FLUCTUATION [None]
  - SPINAL CORD INFARCTION [None]
